FAERS Safety Report 21902126 (Version 3)
Quarter: 2023Q2

REPORT INFORMATION
  Report Type: Spontaneous
  Country: US (occurrence: US)
  Receive Date: 20230124
  Receipt Date: 20230410
  Transmission Date: 20230722
  Serious: No
  Sender: FDA-Public Use
  Company Number: US-BRISTOL-MYERS SQUIBB COMPANY-2023-008555

PATIENT
  Age: 77 Year
  Sex: Male
  Weight: 79.38 kg

DRUGS (5)
  1. ELIQUIS [Suspect]
     Active Substance: APIXABAN
     Indication: Cardiac failure
  2. VYNDAMAX [Suspect]
     Active Substance: TAFAMIDIS
     Indication: Amyloidosis
  3. SIMVASTATIN [Concomitant]
     Active Substance: SIMVASTATIN
     Indication: Cardiac failure
  4. FUROSEMIDE [Concomitant]
     Active Substance: FUROSEMIDE
     Indication: Cardiac failure
     Dosage: ADDITIONAL INFORMATION FOR OTHER MEDICINES FUROSEMIDE: STATES IS A WATER PILL.
  5. POTASSIUM [Concomitant]
     Active Substance: POTASSIUM
     Indication: Cardiac failure

REACTIONS (1)
  - Off label use [Unknown]
